FAERS Safety Report 10224452 (Version 2)
Quarter: 2015Q3

REPORT INFORMATION
  Report Type: Spontaneous
  Country: JP (occurrence: JP)
  Receive Date: 20140609
  Receipt Date: 20150908
  Transmission Date: 20151125
  Serious: Yes (Death, Hospitalization)
  Sender: FDA-Public Use
  Company Number: JP-SA-2014SA073501

PATIENT
  Sex: Male
  Weight: 27 kg

DRUGS (16)
  1. NEORAL [Concomitant]
     Active Substance: CYCLOSPORINE
     Indication: PROPHYLAXIS AGAINST GRAFT VERSUS HOST DISEASE
     Dates: start: 20120723, end: 20120923
  2. KAYTWO N [Concomitant]
     Active Substance: MENATETRENONE
     Indication: PROPHYLAXIS
     Dates: start: 20120720, end: 20120722
  3. GRANISETRON [Concomitant]
     Active Substance: GRANISETRON
     Indication: PROPHYLAXIS
     Dates: start: 20120717, end: 20120722
  4. FRAGMIN [Concomitant]
     Active Substance: DALTEPARIN SODIUM
     Indication: PROPHYLAXIS
     Dates: start: 20120719, end: 20120719
  5. SOLACET D [Concomitant]
     Dates: start: 20120722, end: 20120723
  6. FAMOTIDINE. [Concomitant]
     Active Substance: FAMOTIDINE
     Indication: PROPHYLAXIS
     Dates: start: 20120717, end: 20120724
  7. SOL-MELCORT [Concomitant]
     Active Substance: METHYLPREDNISOLONE SODIUM SUCCINATE
     Indication: PROPHYLAXIS
     Dates: start: 20120719, end: 20120730
  8. BUSULFEX [Suspect]
     Active Substance: BUSULFAN
     Indication: NON-HODGKIN^S LYMPHOMA
     Route: 065
     Dates: start: 20120718, end: 20120722
  9. FENTANYL. [Concomitant]
     Active Substance: FENTANYL
     Indication: ORAL DISORDER
     Dates: start: 20120720, end: 20120724
  10. FLUCONAZOLE. [Concomitant]
     Active Substance: FLUCONAZOLE
     Indication: INFECTION PROPHYLAXIS
     Dates: start: 20120717, end: 20120726
  11. THYMOGLOBULINE [Suspect]
     Active Substance: LAPINE T-LYMPHOCYTE IMMUNE GLOBULIN
     Indication: BONE MARROW CONDITIONING REGIMEN
     Route: 042
     Dates: start: 20120719, end: 20120722
  12. HEPARIN/ANTITHROMBIN III/FACTOR X (STUART PROWER FACTOR)/FACTOR IX/FACTOR II (PROTHROMBIN)/PLASMA PR [Concomitant]
     Indication: PROPHYLAXIS
     Dates: start: 20120722, end: 20120722
  13. FLUDARA [Suspect]
     Active Substance: FLUDARABINE PHOSPHATE
     Indication: NON-HODGKIN^S LYMPHOMA
     Route: 065
     Dates: start: 20120717, end: 20120721
  14. CARBOHYDRATES NOS/SODIUM LACTATE/SODIUM CHLORIDE/POTASSIUM CHLORIDE [Concomitant]
     Dates: start: 20120716, end: 20120923
  15. NORMAL SALINE [Concomitant]
     Active Substance: SODIUM CHLORIDE
     Indication: PRODUCT SOLUBILITY ABNORMAL
     Dates: start: 20120718, end: 20120801
  16. HEPAFLUSH [Concomitant]
     Indication: PROPHYLAXIS
     Dosage: SYRINGE
     Dates: start: 20120723, end: 20120723

REACTIONS (6)
  - Pseudomonal sepsis [Recovering/Resolving]
  - Sepsis [Not Recovered/Not Resolved]
  - Stomatitis [Recovered/Resolved]
  - Cytokine storm [Fatal]
  - Respiratory disorder [Fatal]
  - Human herpesvirus 6 infection [Recovered/Resolved]

NARRATIVE: CASE EVENT DATE: 20120720
